FAERS Safety Report 7707793-6 (Version None)
Quarter: 2011Q3

REPORT INFORMATION
  Report Type: 
  Country: None (occurrence: None)
  Receive Date: 20110824
  Receipt Date: 20110817
  Transmission Date: 20111222
  Serious: Yes (Death)
  Sender: FDA-Public Use
  Company Number: CH-GILEAD-E2B_00001459

PATIENT
  Age: 72 Year
  Sex: Male

DRUGS (4)
  1. AMBRISENTAN [Suspect]
     Indication: PRODUCT USED FOR UNKNOWN INDICATION
     Dosage: 5MG PER DAY
     Route: 048
     Dates: start: 20100901, end: 20110716
  2. SINTROM [Concomitant]
     Route: 048
     Dates: end: 20110719
  3. REVATIO [Suspect]
     Indication: PRODUCT USED FOR UNKNOWN INDICATION
     Dosage: 20MG THREE TIMES PER DAY
     Route: 048
     Dates: start: 20100901, end: 20110716
  4. MORPHINE [Concomitant]
     Dosage: 2.5MG SIX TIMES PER DAY
     Route: 065

REACTIONS (1)
  - VENOUS THROMBOSIS [None]
